FAERS Safety Report 7645432-3 (Version None)
Quarter: 2011Q3

REPORT INFORMATION
  Report Type: 
  Country: None (occurrence: None)
  Receive Date: 20110729
  Receipt Date: 20110726
  Transmission Date: 20111222
  Serious: Yes (Other)
  Sender: FDA-Public Use
  Company Number: CHPA2011US09977

PATIENT
  Age: 57 Year
  Sex: Male

DRUGS (2)
  1. BENEFIBER SUGAR FREE [Suspect]
     Indication: GASTROINTESTINAL DISORDER
  2. BENEFIBER SUGAR FREE [Suspect]
     Indication: WEIGHT CONTROL
     Dosage: ABOUT 20 DF, QD
     Route: 048

REACTIONS (4)
  - OVERDOSE [None]
  - DRUG DEPENDENCE [None]
  - OFF LABEL USE [None]
  - WEIGHT DECREASED [None]
